FAERS Safety Report 5197665-6 (Version None)
Quarter: 2006Q4

REPORT INFORMATION
  Report Type: 
  Country: None (occurrence: None)
  Receive Date: 20061227
  Receipt Date: 20061213
  Transmission Date: 20070319
  Serious: Yes (Hospitalization)
  Sender: FDA-Public Use
  Company Number: 2006111395

PATIENT
  Age: 48 Year
  Sex: Male

DRUGS (4)
  1. SU-011,248 (SUNITINIB MALATE) [Suspect]
     Indication: METASTATIC RENAL CELL CARCINOMA
     Dosage: 37.5 MG (37.5 MG, 1 IN 1 D), ORAL
     Route: 048
     Dates: start: 20060727, end: 20060907
  2. METOCLOPRAMIDE [Concomitant]
  3. CELEBREX [Concomitant]
  4. OMEPRAZOLE [Concomitant]

REACTIONS (2)
  - PALPITATIONS [None]
  - PULMONARY EMBOLISM [None]
